FAERS Safety Report 20550289 (Version 1)
Quarter: 2022Q1

REPORT INFORMATION
  Report Type: Spontaneous
  Country: US (occurrence: US)
  Receive Date: 20220304
  Receipt Date: 20220304
  Transmission Date: 20220423
  Serious: Yes (Disabling, Other)
  Sender: FDA-Public Use
  Company Number: US-PURDUE-USA-2020-0281325

PATIENT
  Sex: Male

DRUGS (2)
  1. OXYCODONE HYDROCHLORIDE [Suspect]
     Active Substance: OXYCODONE HYDROCHLORIDE
     Indication: Pain management
     Dosage: 15 MG WITH UNKNOWN FREQUENCY
     Route: 065
     Dates: start: 20100118
  2. OXYCODONE HYDROCHLORIDE [Suspect]
     Active Substance: OXYCODONE HYDROCHLORIDE
     Dosage: 30 MG WITH UNKNOWN FREQUENCY
     Route: 065
     Dates: start: 20100118

REACTIONS (3)
  - Drug dependence [Unknown]
  - Product prescribing error [Unknown]
  - Emotional distress [Unknown]
